FAERS Safety Report 4778761-1 (Version None)
Quarter: 2005Q3

REPORT INFORMATION
  Report Type: 
  Country: None (occurrence: None)
  Receive Date: 20050923
  Receipt Date: 20050913
  Transmission Date: 20060218
  Serious: Yes (Other)
  Sender: FDA-Public Use
  Company Number: 200512854GDS

PATIENT
  Sex: 0

DRUGS (2)
  1. APROTININ [Suspect]
     Indication: HAEMORRHAGE
     Dosage: SEE IMAGE
     Route: 042
  2. APROTININ [Suspect]
     Indication: PROPHYLAXIS
     Dosage: SEE IMAGE
     Route: 042

REACTIONS (2)
  - CONFUSIONAL STATE [None]
  - POST PROCEDURAL COMPLICATION [None]
